FAERS Safety Report 4619332-7 (Version None)
Quarter: 2005Q2

REPORT INFORMATION
  Report Type: 
  Country: None (occurrence: None)
  Receive Date: 20050321
  Receipt Date: 20040315
  Transmission Date: 20051028
  Serious: Yes (Other)
  Sender: FDA-Public Use
  Company Number: 2004-03-1033

PATIENT
  Sex: Female

DRUGS (2)
  1. PEG-INTRON [Suspect]
     Indication: HEPATITIS C
     Dosage: SUBCUTANEOUS
     Route: 058
     Dates: end: 20030701
  2. REBETOL [Suspect]
     Indication: HEPATITIS C
     Dosage: ORAL
     Route: 048
     Dates: end: 20030701

REACTIONS (6)
  - ANXIETY [None]
  - DEPRESSION [None]
  - IRRITABILITY [None]
  - LABORATORY TEST ABNORMAL [None]
  - SUICIDAL IDEATION [None]
  - VISION BLURRED [None]
